FAERS Safety Report 5211778-1 (Version None)
Quarter: 2007Q1

REPORT INFORMATION
  Report Type: 
  Country: None (occurrence: None)
  Receive Date: 20070118
  Receipt Date: 20070109
  Transmission Date: 20070707
  Serious: Yes (Hospitalization)
  Sender: FDA-Public Use
  Company Number: JP-ROCHE-472551

PATIENT
  Age: 53 Year
  Sex: Male

DRUGS (11)
  1. ANEXATE TAB [Suspect]
     Indication: SEDATION
     Route: 042
     Dates: start: 20061108, end: 20061108
  2. ROHYPNOL [Suspect]
     Indication: SEDATION
     Dosage: OTHER INDICATION: ENDOSCOPY
     Route: 042
     Dates: start: 20061008
  3. ROHYPNOL [Suspect]
     Route: 042
     Dates: start: 20061108
  4. TAKEPRON [Concomitant]
     Indication: GASTRIC ULCER
     Route: 048
     Dates: start: 20061008, end: 20061114
  5. MEROPEN [Concomitant]
     Dates: start: 20061001, end: 20061114
  6. CALTAN [Concomitant]
  7. FRANDOL [Concomitant]
  8. CYANOCOBALAMIN [Concomitant]
  9. FOLIAMIN [Concomitant]
  10. RENAGEL [Concomitant]
     Dates: end: 20061109
  11. FUTHAN [Concomitant]
     Dates: start: 20061010, end: 20061018

REACTIONS (1)
  - AGRANULOCYTOSIS [None]
